FAERS Safety Report 20670000 (Version 1)
Quarter: 2022Q2

REPORT INFORMATION
  Report Type: Other
  Country: CN (occurrence: None)
  Receive Date: 20220404
  Receipt Date: 20220404
  Transmission Date: 20220721
  Serious: Yes (Other)
  Sender: FDA-Public Use
  Company Number: CN-ROCHE-1895928

PATIENT
  Sex: Male
  Weight: 52 kg

DRUGS (1)
  1. BEVACIZUMAB [Suspect]
     Active Substance: BEVACIZUMAB
     Indication: Rectal cancer
     Route: 041
     Dates: start: 20160127, end: 20210824

REACTIONS (3)
  - Lung neoplasm [Not Recovered/Not Resolved]
  - Renal impairment [Unknown]
  - Metabolic disorder [Unknown]
